FAERS Safety Report 4632430-7 (Version None)
Quarter: 2005Q2

REPORT INFORMATION
  Report Type: 
  Country: None (occurrence: None)
  Receive Date: 20050401
  Receipt Date: 20040708
  Transmission Date: 20051028
  Serious: Yes (Hospitalization)
  Sender: FDA-Public Use
  Company Number: 04P-163-0266381-00

PATIENT
  Age: 14 Year
  Sex: Male
  Weight: 56.6996 kg

DRUGS (2)
  1. DEPAKOTE [Suspect]
     Indication: BIPOLAR DISORDER
     Dosage: 1500 MG PER DAY, ORAL
     Route: 048
     Dates: start: 20040501, end: 20040702
  2. QUETIAPINE FUMARATE [Concomitant]

REACTIONS (4)
  - CHEST PAIN [None]
  - CHROMATURIA [None]
  - PANCREATITIS [None]
  - RETCHING [None]
